FAERS Safety Report 9140058 (Version 2)
Quarter: 2013Q1

REPORT INFORMATION
  Report Type: Spontaneous
  Country: JP (occurrence: JP)
  Receive Date: 20130305
  Receipt Date: 20130314
  Transmission Date: 20140127
  Serious: Yes (Hospitalization)
  Sender: FDA-Public Use
  Company Number: JP-PFIZER INC-2012307047

PATIENT
  Age: 59 Year
  Sex: Male
  Weight: 62 kg

DRUGS (8)
  1. LYRICA [Suspect]
     Indication: NEURALGIA
     Dosage: 150 MG/DAY
     Route: 048
     Dates: start: 20110801, end: 2012
  2. LYRICA [Suspect]
     Dosage: 75 MG, 2X/DAY
     Route: 048
     Dates: start: 20110826, end: 20121119
  3. LYRICA [Suspect]
     Dosage: 75 MG, 2X/DAY
     Route: 048
     Dates: start: 20121126, end: 20121205
  4. ITRIZOLE [Suspect]
     Indication: PROPHYLAXIS
     Dosage: 100 MG, 1X/DAY
     Route: 048
     Dates: start: 20110413, end: 20121121
  5. BAKTAR [Suspect]
     Indication: PROPHYLAXIS
     Dosage: 1 TABLET ONCE DAILY
     Route: 048
     Dates: start: 20110413, end: 20121121
  6. DENOSINE [Suspect]
     Indication: CYTOMEGALOVIRUS HEPATITIS
     Dosage: 150 MG, 2X/DAY
     Route: 041
     Dates: start: 20121108, end: 20121119
  7. VELCADE [Concomitant]
     Dosage: UNK
  8. OXYCONTIN [Concomitant]
     Dosage: UNK

REACTIONS (1)
  - Hepatic function abnormal [Recovered/Resolved]
